FAERS Safety Report 8830048 (Version 1)
Quarter: 2012Q4

REPORT INFORMATION
  Report Type: 
  Country: US (occurrence: US)
  Receive Date: 20121008
  Receipt Date: 20121008
  Transmission Date: 20130627
  Serious: Yes (Other)
  Sender: FDA-Public Use
  Company Number: US-PFIZER INC-2012246737

PATIENT
  Age: 59 Year
  Sex: Female
  Weight: 90.7 kg

DRUGS (3)
  1. LYRICA [Suspect]
     Dosage: 25 mg, 2x/day
     Route: 048
  2. LYRICA [Suspect]
     Dosage: 25 mg, 3x/day
     Route: 048
     Dates: start: 20120928
  3. ACETAMINOPHEN [Concomitant]
     Indication: ARTHRITIS
     Dosage: UNK
     Route: 048

REACTIONS (6)
  - Hypothyroidism [Unknown]
  - Obesity [Unknown]
  - Pain [Unknown]
  - Osteoarthritis [Unknown]
  - Osteoarthritis [Unknown]
  - Arthralgia [Unknown]
